FAERS Safety Report 5324911-8 (Version None)
Quarter: 2007Q2

REPORT INFORMATION
  Report Type: 
  Country: None (occurrence: None)
  Receive Date: 20070515
  Receipt Date: 20070510
  Transmission Date: 20071010
  Serious: Yes (Death, Hospitalization)
  Sender: FDA-Public Use
  Company Number: PHEH2007US07193

PATIENT
  Age: 53 Year
  Sex: Female

DRUGS (1)
  1. ZELNORM [Suspect]
     Indication: CONSTIPATION
     Route: 048

REACTIONS (3)
  - ABDOMINAL DISCOMFORT [None]
  - CARDIAC ARREST [None]
  - FALL [None]
